FAERS Safety Report 5217544-5 (Version None)
Quarter: 2007Q1

REPORT INFORMATION
  Report Type: 
  Country: None (occurrence: None)
  Receive Date: 20070124
  Receipt Date: 20060302
  Transmission Date: 20070707
  Serious: No
  Sender: FDA-Public Use
  Company Number: US-GLAXOSMITHKLINE-A0597413A

PATIENT

DRUGS (5)
  1. PAXIL CR [Suspect]
     Indication: ANXIETY
     Dosage: 25MG PER DAY
     Route: 048
  2. TOPROL-XL [Concomitant]
  3. HYDROCHLOROTHIAZIDE [Concomitant]
  4. KLONOPIN [Concomitant]
  5. PERCOCET [Concomitant]

REACTIONS (3)
  - ANXIETY [None]
  - DRUG INTERACTION [None]
  - PANIC ATTACK [None]
